FAERS Safety Report 10457455 (Version 2)
Quarter: 2014Q4

REPORT INFORMATION
  Report Type: Spontaneous
  Country: JP (occurrence: JP)
  Receive Date: 20140916
  Receipt Date: 20141118
  Transmission Date: 20150528
  Serious: Yes (Other)
  Sender: FDA-Public Use
  Company Number: JP-MYLANLABS-2014M1004503

PATIENT

DRUGS (2)
  1. OLANZAPINE. [Suspect]
     Active Substance: OLANZAPINE
     Dosage: 2.5 MG, QD
     Route: 065
  2. PAXIL [Suspect]
     Active Substance: PAROXETINE HYDROCHLORIDE
     Dosage: 20 MG, QD
     Route: 065

REACTIONS (1)
  - Hypoglycaemia [Recovered/Resolved]
